FAERS Safety Report 4810862-1 (Version None)
Quarter: 2005Q4

REPORT INFORMATION
  Report Type: 
  Country: None (occurrence: None)
  Receive Date: 20051027
  Receipt Date: 20050818
  Transmission Date: 20060501
  Serious: No
  Sender: FDA-Public Use
  Company Number: US-GLAXOSMITHKLINE-A0570830A

PATIENT
  Sex: Male

DRUGS (3)
  1. LEXIVA [Suspect]
     Indication: HIV INFECTION
     Dosage: 2TAB TWICE PER DAY
     Route: 048
     Dates: start: 20050818
  2. XANAX [Concomitant]
  3. LORTAB [Concomitant]

REACTIONS (6)
  - DIZZINESS [None]
  - FEELING DRUNK [None]
  - RASH [None]
  - RASH PRURITIC [None]
  - RASH VESICULAR [None]
  - VISION BLURRED [None]
